FAERS Safety Report 25100425 (Version 4)
Quarter: 2025Q3

REPORT INFORMATION
  Report Type: Spontaneous
  Country: US (occurrence: US)
  Receive Date: 20250320
  Receipt Date: 20250911
  Transmission Date: 20251021
  Serious: No
  Sender: PFIZER
  Company Number: US-PFIZER INC-PV202500033228

PATIENT
  Age: 53 Year
  Sex: Female

DRUGS (3)
  1. TUKYSA [Suspect]
     Active Substance: TUCATINIB
     Indication: Breast cancer female
     Dosage: 150 MG, 2X/DAY
     Dates: start: 202409
  2. TUKYSA [Suspect]
     Active Substance: TUCATINIB
     Dosage: 100 MG, 2X/DAY
  3. TUKYSA [Suspect]
     Active Substance: TUCATINIB
     Dosage: 50 MG, 2X/DAY (TAKE ONE 50MG TABLET BY MOUTH TWICE DAILY)
     Route: 048

REACTIONS (3)
  - Dizziness [Unknown]
  - Off label use [Unknown]
  - Off label use [Unknown]
